FAERS Safety Report 19217356 (Version 2)
Quarter: 2021Q2

REPORT INFORMATION
  Report Type: Spontaneous
  Country: US (occurrence: US)
  Receive Date: 20210505
  Receipt Date: 20210526
  Transmission Date: 20210717
  Serious: No
  Sender: FDA-Public Use
  Company Number: US-ASTRAZENECA-2021A390237

PATIENT
  Sex: Male

DRUGS (1)
  1. BYDUREON BCISE [Suspect]
     Active Substance: EXENATIDE
     Dosage: 2.0MG UNKNOWN
     Route: 065
     Dates: start: 2021

REACTIONS (4)
  - Injection site haemorrhage [Unknown]
  - Device use issue [Unknown]
  - Device leakage [Unknown]
  - Device malfunction [Unknown]
